FAERS Safety Report 4420462-3 (Version None)
Quarter: 2004Q3

REPORT INFORMATION
  Report Type: 
  Country: None (occurrence: None)
  Receive Date: 20040809
  Receipt Date: 20040305
  Transmission Date: 20050211
  Serious: No
  Sender: FDA-Public Use
  Company Number: US-GLAXOSMITHKLINE-A0501416A

PATIENT
  Age: 46 Year
  Sex: Female

DRUGS (1)
  1. PAXIL CR [Suspect]
     Indication: POST-TRAUMATIC STRESS DISORDER
     Dosage: 25MG PER DAY
     Route: 048

REACTIONS (11)
  - CONFUSIONAL STATE [None]
  - DIZZINESS [None]
  - DRUG WITHDRAWAL SYNDROME [None]
  - DYSARTHRIA [None]
  - HYPERHIDROSIS [None]
  - INSOMNIA [None]
  - IRRITABILITY [None]
  - MOTOR DYSFUNCTION [None]
  - NIGHTMARE [None]
  - SLUGGISHNESS [None]
  - VISION BLURRED [None]
